FAERS Safety Report 7159381-0 (Version None)
Quarter: 2010Q4

REPORT INFORMATION
  Report Type: 
  Country: None (occurrence: None)
  Receive Date: 20101214
  Receipt Date: 20100825
  Transmission Date: 20110411
  Serious: No
  Sender: FDA-Public Use
  Company Number: US-ASTRAZENECA-2010SE40130

PATIENT
  Age: 865 Month
  Sex: Female
  Weight: 61.7 kg

DRUGS (9)
  1. CRESTOR [Suspect]
     Indication: HYPERCHOLESTEROLAEMIA
     Route: 048
  2. LIPITOR [Concomitant]
     Indication: VASCULAR GRAFT
  3. TRICOR [Concomitant]
     Indication: VASCULAR GRAFT
  4. PLAVIX [Concomitant]
     Indication: VASCULAR GRAFT
  5. METOPROLOL SUCCINATE [Concomitant]
  6. ASPIRIN [Concomitant]
     Indication: VASCULAR GRAFT
  7. METFORMIN [Concomitant]
     Indication: DIABETES MELLITUS
  8. VITAMIN D [Concomitant]
  9. LOTREL [Concomitant]

REACTIONS (1)
  - BLOOD CALCIUM INCREASED [None]
